FAERS Safety Report 16033313 (Version 1)
Quarter: 2019Q2

REPORT INFORMATION
  Report Type: Spontaneous
  Country: US (occurrence: US)
  Receive Date: 20190304
  Receipt Date: 20190304
  Transmission Date: 20190711
  Serious: No
  Sender: FDA-Public Use
  Company Number: None

PATIENT
  Age: 57 Year
  Sex: Female
  Weight: 81 kg

DRUGS (2)
  1. CLARITHROMYCIN. [Suspect]
     Active Substance: CLARITHROMYCIN
     Indication: SINUSITIS
     Dosage: ?          QUANTITY:1 TABLET(S);?
     Route: 048
     Dates: start: 20190225, end: 20190303
  2. PREDNISONE. [Concomitant]
     Active Substance: PREDNISONE

REACTIONS (22)
  - Diarrhoea [None]
  - Taste disorder [None]
  - Eructation [None]
  - Dyspepsia [None]
  - Abdominal pain upper [None]
  - Fatigue [None]
  - Chest pain [None]
  - Pyrexia [None]
  - Asthenia [None]
  - Cough [None]
  - Chills [None]
  - Chest discomfort [None]
  - Abdominal distension [None]
  - Vision blurred [None]
  - Flatulence [None]
  - Ocular hyperaemia [None]
  - Back pain [None]
  - Decreased appetite [None]
  - Headache [None]
  - Eye irritation [None]
  - Aerophagia [None]
  - Dysphagia [None]

NARRATIVE: CASE EVENT DATE: 20190303
